FAERS Safety Report 17088364 (Version 2)
Quarter: 2019Q4

REPORT INFORMATION
  Report Type: Spontaneous
  Country: CA (occurrence: CA)
  Receive Date: 20191128
  Receipt Date: 20191206
  Transmission Date: 20200122
  Serious: Yes (Hospitalization, Other)
  Sender: FDA-Public Use
  Company Number: CA-SUNOVION-2019SUN005176

PATIENT
  Age: 34 Year
  Sex: Female
  Weight: 99 kg

DRUGS (2)
  1. LATUDA [Suspect]
     Active Substance: LURASIDONE HYDROCHLORIDE
     Indication: SCHIZOPHRENIA
     Dosage: 80 MG
     Route: 048
  2. CLONAZEPAM. [Concomitant]
     Active Substance: CLONAZEPAM
     Dosage: 1.5 MG, HS
     Route: 048

REACTIONS (2)
  - Leukopenia [Recovered/Resolved]
  - Full blood count abnormal [Recovered/Resolved]

NARRATIVE: CASE EVENT DATE: 20191031
